FAERS Safety Report 4646362-1 (Version None)
Quarter: 2005Q2

REPORT INFORMATION
  Report Type: 
  Country: None (occurrence: None)
  Receive Date: 20050422
  Receipt Date: 20050422
  Transmission Date: 20051028
  Serious: Yes (Hospitalization)
  Sender: FDA-Public Use
  Company Number: None

PATIENT
  Age: 63 Year
  Sex: Female
  Weight: 114.8 kg

DRUGS (15)
  1. DILTIAZEM [Suspect]
  2. ACETAMINOPHEN [Concomitant]
  3. HYDROCHLOROTHIAZIDE [Concomitant]
  4. GUAIFENESIN 100MG/CODEINE [Concomitant]
  5. GATIFLOXACIN [Concomitant]
  6. LORAZEPAM [Concomitant]
  7. TRAMADOL HCL [Concomitant]
  8. SALMETEROL 50MCG/BLST INHL DISKUS 60 [Concomitant]
  9. ALBUTEROL [Concomitant]
  10. ALBUTEROL SULFATE AND IPRATROPIUM BROMIDE [Concomitant]
  11. FERROUS SULFATE TAB [Concomitant]
  12. IPRATROPIUM BROMIDE [Concomitant]
  13. LORATADINE [Concomitant]
  14. OXYBUTYNIN CHLORIDE [Concomitant]
  15. RANITIDINE HCL [Concomitant]

REACTIONS (1)
  - ANXIETY [None]
